FAERS Safety Report 5324545-5 (Version None)
Quarter: 2007Q2

REPORT INFORMATION
  Report Type: 
  Country: None (occurrence: None)
  Receive Date: 20070514
  Receipt Date: 20070502
  Transmission Date: 20071010
  Serious: Yes (Other)
  Sender: FDA-Public Use
  Company Number: JP-PFIZER INC-2007036192

PATIENT
  Age: 81 Year
  Sex: Female

DRUGS (2)
  1. CABASER [Suspect]
     Indication: PARKINSON'S DISEASE
     Route: 048
     Dates: start: 20030101, end: 20070501
  2. MENESIT [Concomitant]
     Route: 048

REACTIONS (1)
  - CARDIAC VALVE DISEASE [None]
